FAERS Safety Report 5040512-3 (Version None)
Quarter: 2006Q2

REPORT INFORMATION
  Report Type: 
  Country: None (occurrence: None)
  Receive Date: 20060630
  Receipt Date: 20060623
  Transmission Date: 20061013
  Serious: Yes (Hospitalization)
  Sender: FDA-Public Use
  Company Number: CA-ABBOTT-06P-028-0336864-00

PATIENT
  Sex: Female

DRUGS (2)
  1. VALPROIC ACID [Suspect]
     Indication: CONVULSION
     Route: 048
  2. DEPAKENE [Concomitant]
     Indication: CONVULSION
     Route: 051

REACTIONS (2)
  - ADVERSE EVENT [None]
  - DIARRHOEA [None]
